FAERS Safety Report 5488254-4 (Version None)
Quarter: 2007Q4

REPORT INFORMATION
  Report Type: 
  Country: None (occurrence: None)
  Receive Date: 20071017
  Receipt Date: 20071005
  Transmission Date: 20080405
  Serious: Yes (Hospitalization)
  Sender: FDA-Public Use
  Company Number: JP-ROCHE-524360

PATIENT
  Age: 67 Year
  Sex: Female

DRUGS (1)
  1. PEGASYS [Suspect]
     Route: 058

REACTIONS (2)
  - MULTIPLE MYELOMA [None]
  - PROTEIN TOTAL INCREASED [None]
